FAERS Safety Report 9257684 (Version 1)
Quarter: 2013Q1

REPORT INFORMATION
  Report Type: Spontaneous
  Country: US (occurrence: None)
  Receive Date: 20121212
  Receipt Date: 20121212
  Transmission Date: 20140127
  Serious: No
  Sender: FDA-Public Use
  Company Number: 1209USA005395

PATIENT
  Sex: Female

DRUGS (2)
  1. REBETOL (RIBAVIRIN) CAPSULE [Suspect]
     Indication: HEPATITIS C
     Route: 048
     Dates: start: 20120623
  2. PEGASYS (PEGINTERFERON ALFA-2A) [Suspect]

REACTIONS (3)
  - Cough [None]
  - Haemoglobin decreased [None]
  - Asthenia [None]
